FAERS Safety Report 21844770 (Version 2)
Quarter: 2023Q1

REPORT INFORMATION
  Report Type: Spontaneous
  Country: US (occurrence: US)
  Receive Date: 20230110
  Receipt Date: 20230125
  Transmission Date: 20230418
  Serious: No
  Sender: FDA-Public Use
  Company Number: US-MYLANLABS-2022M1139142

PATIENT
  Sex: Female
  Weight: 101.1 kg

DRUGS (1)
  1. LANSOPRAZOLE [Suspect]
     Active Substance: LANSOPRAZOLE
     Indication: Gastrooesophageal reflux disease
     Dosage: UNK UNK, AM (ONCE DAILY IN THE MORNING )
     Route: 048
     Dates: start: 20221122

REACTIONS (3)
  - Oesophagitis [Not Recovered/Not Resolved]
  - Drug intolerance [Unknown]
  - Drug ineffective [Not Recovered/Not Resolved]
